FAERS Safety Report 5764866-5 (Version None)
Quarter: 2008Q2

REPORT INFORMATION
  Report Type: 
  Country: None (occurrence: None)
  Receive Date: 20080611
  Receipt Date: 20080527
  Transmission Date: 20081010
  Serious: Yes (Hospitalization)
  Sender: FDA-Public Use
  Company Number: US-ELI_LILLY_AND_COMPANY-US200711002608

PATIENT
  Sex: Female
  Weight: 110.66 kg

DRUGS (11)
  1. BYETTA [Suspect]
     Indication: TYPE 2 DIABETES MELLITUS
     Dosage: 5 UG, 2/D
     Route: 058
     Dates: start: 20050101, end: 20060601
  2. BYETTA [Suspect]
     Dosage: 10 UG, 2/D
     Route: 058
     Dates: start: 20060101, end: 20070101
  3. BYETTA [Suspect]
     Dosage: 5 UG, 2/D
     Route: 058
     Dates: start: 20070901, end: 20071021
  4. BYETTA [Suspect]
     Dosage: 10 UG, 2/D
     Route: 058
     Dates: start: 20071022
  5. BYETTA [Suspect]
     Dosage: 10 UG, 2/D
     Route: 058
  6. METFORMIN HCL [Concomitant]
     Indication: TYPE 2 DIABETES MELLITUS
     Dosage: 2000 MG, DAILY (1/D)
     Route: 048
     Dates: end: 20070801
  7. METFORMIN HCL [Concomitant]
     Dosage: 1000 MG, 2/D
     Dates: start: 20080301
  8. ANTI-DIABETICS [Concomitant]
     Indication: TYPE 2 DIABETES MELLITUS
     Dosage: 100 MG, DAILY (1/D)
     Route: 048
     Dates: start: 20071022
  9. FLOVENT [Concomitant]
     Indication: ASTHMA
     Dosage: 110 UG, 2/D
     Route: 055
     Dates: start: 20071022
  10. NEXIUM [Concomitant]
     Indication: GASTROOESOPHAGEAL REFLUX DISEASE
     Dosage: 40 MG, 2/D
     Route: 048
     Dates: start: 20030101
  11. ASPIRIN [Concomitant]
     Indication: TENSION HEADACHE
     Dosage: 325 MG, DAILY (1/D)
     Dates: start: 20070601

REACTIONS (12)
  - ASTHMA [None]
  - BLOOD GLUCOSE INCREASED [None]
  - BRONCHIOLITIS [None]
  - COUGH [None]
  - DEHYDRATION [None]
  - FEELING HOT [None]
  - INJECTION SITE PAIN [None]
  - NIGHT SWEATS [None]
  - PNEUMONIA [None]
  - PYELONEPHRITIS [None]
  - PYREXIA [None]
  - SECRETION DISCHARGE [None]
